FAERS Safety Report 5818833-3 (Version None)
Quarter: 2008Q3

REPORT INFORMATION
  Report Type: 
  Country: None (occurrence: None)
  Receive Date: 20080721
  Receipt Date: 20080721
  Transmission Date: 20090109
  Serious: Yes (Death, Life-Threatening, Hospitalization)
  Sender: FDA-Public Use
  Company Number: None

PATIENT
  Age: 80 Year
  Sex: Male
  Weight: 79.3795 kg

DRUGS (1)
  1. DIGITEK 0.125MG BERTEK [Suspect]
     Indication: CARDIAC FAILURE
     Dosage: .25 MWF 0.125 TTHSS, ABOUT 6-7 WEEKS
     Dates: start: 20080324, end: 20080504

REACTIONS (10)
  - AGITATION [None]
  - ANOREXIA [None]
  - ASTHENIA [None]
  - BACTERAEMIA [None]
  - DEHYDRATION [None]
  - DEPRESSION [None]
  - EATING DISORDER [None]
  - FLUID RETENTION [None]
  - HEART RATE IRREGULAR [None]
  - PNEUMONIA [None]
